FAERS Safety Report 24257457 (Version 1)
Quarter: 2024Q3

REPORT INFORMATION
  Report Type: Spontaneous
  Country: GB (occurrence: GB)
  Receive Date: 20240828
  Receipt Date: 20240828
  Transmission Date: 20241017
  Serious: Yes (Congenital Anomaly, Other)
  Sender: TEVA
  Company Number: GB-MHRA-TPP56092074C9065459YC1723828206929

PATIENT
  Age: 65 Year
  Sex: Female
  Weight: 85 kg

DRUGS (6)
  1. DOXYCYCLINE [Suspect]
     Active Substance: DOXYCYCLINE\DOXYCYCLINE HYCLATE
     Indication: Ill-defined disorder
     Route: 058
     Dates: start: 19680621
  2. DYMISTA [Concomitant]
     Active Substance: AZELASTINE HYDROCHLORIDE\FLUTICASONE PROPIONATE
     Indication: Ill-defined disorder
     Dosage: ONE SPRAY TO BE USED IN EACH NOSTRIL TWICE A DAY, TPP YC - PLEASE RECLASSIFY
     Route: 045
     Dates: start: 20230313, end: 20240521
  3. FLUTICASONE FUROATE\VILANTEROL TRIFENATATE [Concomitant]
     Active Substance: FLUTICASONE FUROATE\VILANTEROL TRIFENATATE
     Indication: Ill-defined disorder
     Dosage: ONE DOSE TO BE INHALED EACH DAY AS RECOMMENDED ..., TPP YC - PLEASE RECLASSIFY
     Route: 055
     Dates: start: 20230313
  4. CETIRIZINE [Concomitant]
     Active Substance: CETIRIZINE HYDROCHLORIDE
     Indication: Ill-defined disorder
     Dosage: AS NEEDED
     Dates: start: 20240106, end: 20240521
  5. SEA WATER [Concomitant]
     Active Substance: SEA WATER
     Indication: Ill-defined disorder
     Dosage: AS DIRECTED, TPP YC - PLEASE RECLASSIFY
     Dates: start: 20230313, end: 20240521
  6. LEVOTHYROXINE [Concomitant]
     Active Substance: LEVOTHYROXINE\LEVOTHYROXINE SODIUM
     Indication: Ill-defined disorder
     Dosage: ONE TABLET TO BE TAKEN ONCE A DAY IN THE MORNIN...
     Dates: start: 20230321

REACTIONS (1)
  - Syncope [Recovered/Resolved]

NARRATIVE: CASE EVENT DATE: 19680816
